FAERS Safety Report 5641675-9 (Version None)
Quarter: 2008Q1

REPORT INFORMATION
  Report Type: 
  Country: None (occurrence: None)
  Receive Date: 20080227
  Receipt Date: 20080220
  Transmission Date: 20080703
  Serious: Yes (Hospitalization)
  Sender: FDA-Public Use
  Company Number: US-SANOFI-SYNTHELABO-F01200601899

PATIENT
  Sex: Female
  Weight: 80.3 kg

DRUGS (8)
  1. LOVENOX [Concomitant]
  2. CAPTOPRIL [Concomitant]
  3. GLYBURIDE [Concomitant]
  4. REGLAN [Concomitant]
  5. OXYCODONE HCL [Concomitant]
     Dosage: 5/3.25 MG UNK
     Route: 065
  6. BEVACIZUMAB [Suspect]
     Route: 041
     Dates: start: 20060818, end: 20060818
  7. DOCETAXEL [Suspect]
     Route: 041
     Dates: start: 20060818, end: 20060818
  8. OXALIPLATIN [Suspect]
     Route: 041
     Dates: start: 20060818, end: 20060818

REACTIONS (1)
  - HYPOGLYCAEMIA [None]
